FAERS Safety Report 5507711-5 (Version None)
Quarter: 2007Q4

REPORT INFORMATION
  Report Type: 
  Country: None (occurrence: None)
  Receive Date: 20071106
  Receipt Date: 20071030
  Transmission Date: 20080405
  Serious: Yes (Death, Hospitalization)
  Sender: FDA-Public Use
  Company Number: D0053210A

PATIENT
  Age: 56 Year
  Sex: Male

DRUGS (6)
  1. AVANDIA [Suspect]
     Dosage: 4MG UNKNOWN
     Route: 048
     Dates: end: 20070119
  2. INSULIN [Concomitant]
     Route: 065
     Dates: start: 20070119
  3. FOSINORM [Concomitant]
     Indication: HYPERTENSION
     Dosage: 10MG PER DAY
     Route: 048
     Dates: end: 20070416
  4. ATENOLOL [Concomitant]
     Indication: HYPERTENSION
     Dosage: 50MG TWICE PER DAY
     Route: 048
     Dates: end: 20070416
  5. SIOFOR [Concomitant]
     Dosage: 1000MG TWICE PER DAY
     Route: 048
     Dates: end: 20070416
  6. GLIMEPIRIDE [Concomitant]
     Route: 065
     Dates: start: 20060721, end: 20070416

REACTIONS (10)
  - ABDOMINAL PAIN UPPER [None]
  - ASCITES [None]
  - C-REACTIVE PROTEIN INCREASED [None]
  - CONSTIPATION [None]
  - DIARRHOEA [None]
  - HYPOKALAEMIA [None]
  - METASTASES TO LIVER [None]
  - PANCREATIC CARCINOMA [None]
  - RENAL FAILURE [None]
  - WEIGHT DECREASED [None]
